FAERS Safety Report 14694641 (Version 1)
Quarter: 2018Q1

REPORT INFORMATION
  Report Type: Spontaneous
  Country: US (occurrence: US)
  Receive Date: 20180329
  Receipt Date: 20180329
  Transmission Date: 20180509
  Serious: No
  Sender: FDA-Public Use
  Company Number: US--2017-US-000039

PATIENT
  Sex: Female

DRUGS (3)
  1. CIPROFLAOXACIN [Suspect]
     Active Substance: CIPROFLOXACIN
     Dosage: 500 MG  ORALLY TWO TIMES DAILY
     Route: 048
     Dates: start: 20170413
  2. LOSARTAN. [Concomitant]
     Active Substance: LOSARTAN
     Indication: PRODUCT USED FOR UNKNOWN INDICATION
     Dosage: 50 MG
  3. METRONIDAZOLE BRAND UNSPECIFIED (VIVIMED) [Suspect]
     Active Substance: METRONIDAZOLE
     Indication: DIVERTICULITIS
     Dosage: 500 MG ORALLY THREE TIMES DAILY
     Route: 048
     Dates: start: 20170413

REACTIONS (1)
  - Pruritus [Recovered/Resolved]
